FAERS Safety Report 6942866-7 (Version None)
Quarter: 2010Q3

REPORT INFORMATION
  Report Type: 
  Country: None (occurrence: None)
  Receive Date: 20100826
  Receipt Date: 20100817
  Transmission Date: 20110219
  Serious: Yes (Other)
  Sender: FDA-Public Use
  Company Number: JP-ROCHE-722142

PATIENT
  Sex: Male
  Weight: 48 kg

DRUGS (24)
  1. AVASTIN [Suspect]
     Indication: COLON CANCER METASTATIC
     Route: 041
     Dates: start: 20100608, end: 20100608
  2. AVASTIN [Suspect]
     Route: 041
     Dates: start: 20100629, end: 20100629
  3. AVASTIN [Suspect]
     Route: 041
     Dates: start: 20100720, end: 20100720
  4. AVASTIN [Suspect]
     Dosage: DOSAGE IS UNCERTAIN.
     Route: 041
     Dates: start: 20100817
  5. ELPLAT [Suspect]
     Indication: COLON CANCER METASTATIC
     Dosage: DOSAGE IS UNCERTAIN.
     Route: 041
     Dates: start: 20100608, end: 20100608
  6. ELPLAT [Suspect]
     Dosage: DOSAGE IS UNCERTAIN.
     Route: 041
     Dates: start: 20100629, end: 20100720
  7. FLUOROURACIL [Suspect]
     Indication: COLON CANCER METASTATIC
     Dosage: ROUTE: IV BOLUS. DOSAGE IS UNCERTAIN.
     Route: 042
     Dates: start: 20100608, end: 20100608
  8. FLUOROURACIL [Suspect]
     Dosage: DOSAGE IS UNCERTAIN.
     Route: 042
     Dates: start: 20100629
  9. LEUCOVORIN CALCIUM [Suspect]
     Indication: COLON CANCER METASTATIC
     Dosage: DOSAGE IS UNCERTAIN.
     Route: 041
     Dates: start: 20100608, end: 20100608
  10. LEUCOVORIN CALCIUM [Suspect]
     Dosage: DOSAGE IS UNCERTAIN.
     Route: 041
     Dates: start: 20100629
  11. DECADRON [Suspect]
     Indication: PRODUCT USED FOR UNKNOWN INDICATION
     Dosage: UNCERTAIN DOSAGE AND X2-3/DAY.
     Route: 041
     Dates: start: 20100608, end: 20100101
  12. DECADRON [Suspect]
     Route: 041
     Dates: start: 20100720, end: 20100720
  13. DECADRON [Suspect]
     Dosage: UNCERTAIN DOSAGE AND X2-3/DAY.
     Route: 041
     Dates: start: 20100101
  14. RAMELTEON [Suspect]
     Indication: PRODUCT USED FOR UNKNOWN INDICATION
     Route: 041
     Dates: start: 20100720, end: 20100720
  15. RAMELTEON [Suspect]
     Dosage: DOSAGE IS UNCERTAIN.
     Route: 041
     Dates: start: 20100101
  16. LOXONIN [Concomitant]
     Route: 048
     Dates: start: 20100520
  17. SELBEX [Concomitant]
     Route: 048
     Dates: start: 20100520
  18. AMLODIPINE BESYLATE [Concomitant]
     Route: 048
     Dates: start: 20100608
  19. GOSHAJINKIGAN [Concomitant]
     Route: 048
     Dates: start: 20100601
  20. DUROTEP [Concomitant]
     Dosage: DOSAGE IS UNCERTAIN.FORM:TAPE.
     Route: 062
     Dates: start: 20100524
  21. OPSO [Concomitant]
     Dosage: FORM:PERORAL LIQUID PREPARATION.RESCUE.
     Route: 048
     Dates: start: 20100526
  22. MAGMITT [Concomitant]
     Route: 048
     Dates: start: 20100601
  23. PURSENNID [Concomitant]
     Route: 048
     Dates: start: 20100601
  24. GASTER [Concomitant]
     Dosage: DOSAGE IS UNCERTAIN.
     Route: 042

REACTIONS (7)
  - ANAEMIA [None]
  - BLOOD FIBRINOGEN INCREASED [None]
  - BONE MARROW FAILURE [None]
  - CATHETER SITE INFECTION [None]
  - CHILLS [None]
  - HYPERSENSITIVITY [None]
  - PYREXIA [None]
